FAERS Safety Report 8880937 (Version 1)
Quarter: 2012Q4

REPORT INFORMATION
  Report Type: Report from Study
  Country: KR (occurrence: KR)
  Receive Date: 20121101
  Receipt Date: 20121101
  Transmission Date: 20130627
  Serious: Yes (Death)
  Sender: FDA-Public Use
  Company Number: KR-ABBOTT-12P-090-0996950-00

PATIENT
  Age: 0 Year
  Sex: Female
  Weight: 2.5 kg

DRUGS (10)
  1. SYNAGIS [Suspect]
     Indication: BRONCHOPULMONARY DYSPLASIA
     Route: 030
     Dates: start: 20121015, end: 20121015
  2. SYNAGIS [Suspect]
     Indication: HEART DISEASE CONGENITAL
  3. SYNAGIS [Suspect]
     Indication: PREMATURE BABY
  4. UNSPECIFIED INGREDIENT [Suspect]
     Indication: IMMUNISATION
     Dates: start: 20121015, end: 20121015
  5. ALVITYL [Concomitant]
     Indication: VITAMIN SUPPLEMENTATION
     Dosage: 2mg daily
     Route: 048
     Dates: start: 20120921, end: 20121015
  6. DIGOXIN [Concomitant]
     Indication: CONGENITAL HEART VALVE DISORDER
     Dosage: 0.05mg daily
     Route: 048
     Dates: start: 20120823, end: 20121015
  7. FERRUMMATE [Concomitant]
     Indication: ANAEMIA
     Dosage: solution; 0.3mL daily
     Route: 048
     Dates: start: 20120921, end: 20121015
  8. FUROSEMIDE [Concomitant]
     Indication: CONGENITAL HEART VALVE DISORDER
     Dosage: 3mg daily
     Route: 048
     Dates: start: 20121015, end: 20121015
  9. ROTAVIRUS VACCINE [Concomitant]
     Indication: INFECTION PROPHYLAXIS
     Dosage: 2.5mg daily
     Route: 048
     Dates: start: 20121015, end: 20121015
  10. ROTAVIRUS VACCINE [Concomitant]
     Indication: ROTAVIRUS INFECTION

REACTIONS (1)
  - Unevaluable event [Fatal]
